FAERS Safety Report 6644241-1 (Version None)
Quarter: 2010Q1

REPORT INFORMATION
  Report Type: 
  Country: None (occurrence: None)
  Receive Date: 20100319
  Receipt Date: 20100319
  Transmission Date: 20100710
  Serious: Yes (Hospitalization)
  Sender: FDA-Public Use
  Company Number: None

PATIENT
  Age: 78 Year
  Sex: Male
  Weight: 91 kg

DRUGS (7)
  1. MORPHINE [Suspect]
     Indication: PROCEDURAL PAIN
     Dosage: 12MG IN 3 DIVIDED DOSE OVER 45 MIN IV
     Route: 042
  2. DILAUDID [Suspect]
     Indication: PROCEDURAL PAIN
     Dosage: 2MG 2 DIV DOSES OVER 45 IV
     Route: 042
  3. LISINOPRIL [Concomitant]
  4. HYDROCHLOROTHIAZIDE [Concomitant]
  5. TERAZOSIN HCL [Concomitant]
  6. VITAMIN B-12 [Concomitant]
  7. MVF [Concomitant]

REACTIONS (3)
  - HYPOXIA [None]
  - OXYGEN SATURATION DECREASED [None]
  - POST PROCEDURAL COMPLICATION [None]
